FAERS Safety Report 21546013 (Version 2)
Quarter: 2023Q2

REPORT INFORMATION
  Report Type: Report from Study
  Country: US (occurrence: US)
  Receive Date: 20221103
  Receipt Date: 20230405
  Transmission Date: 20230721
  Serious: No
  Sender: FDA-Public Use
  Company Number: US-ABBVIE-4177180

PATIENT
  Sex: Female

DRUGS (1)
  1. IMBRUVICA [Suspect]
     Active Substance: IBRUTINIB
     Indication: Chronic lymphocytic leukaemia
     Dosage: STRENGTH: 140 MILLIGRAM
     Route: 048
     Dates: start: 20220210

REACTIONS (7)
  - Hyperhidrosis [Unknown]
  - Poor quality sleep [Unknown]
  - Anxiety [Unknown]
  - Panic reaction [Unknown]
  - Feeling abnormal [Unknown]
  - Fatigue [Unknown]
  - Blood pressure increased [Unknown]
